FAERS Safety Report 8392695-5 (Version None)
Quarter: 2012Q2

REPORT INFORMATION
  Report Type: 
  Country: None (occurrence: None)
  Receive Date: 20120525
  Receipt Date: 20120525
  Transmission Date: 20120825
  Serious: Yes (Other)
  Sender: FDA-Public Use
  Company Number: None

PATIENT
  Age: 56 Year
  Sex: Female
  Weight: 79.8331 kg

DRUGS (3)
  1. CYMBALTA [Suspect]
     Indication: SLEEP DISORDER
     Dosage: 1 DAY PO
     Route: 048
     Dates: start: 20120128, end: 20120130
  2. CYMBALTA [Suspect]
     Indication: MENOPAUSAL DISORDER
     Dosage: 1 DAY PO
     Route: 048
     Dates: start: 20120128, end: 20120130
  3. SERTRALINE HYDROCHLORIDE [Suspect]
     Dosage: 1 DAY PO
     Route: 048
     Dates: start: 20120206, end: 20120207

REACTIONS (4)
  - ABDOMINAL PAIN UPPER [None]
  - INFLUENZA [None]
  - HYPERSENSITIVITY [None]
  - DIARRHOEA [None]
